FAERS Safety Report 6326142-1 (Version None)
Quarter: 2009Q3

REPORT INFORMATION
  Report Type: 
  Country: None (occurrence: None)
  Receive Date: 20090824
  Receipt Date: 20090819
  Transmission Date: 20100115
  Serious: Yes (Other)
  Sender: FDA-Public Use
  Company Number: CA-AMGEN-KDL349338

PATIENT
  Sex: Female
  Weight: 95 kg

DRUGS (1)
  1. ENBREL [Suspect]
     Indication: RHEUMATOID ARTHRITIS
     Dates: start: 20061208

REACTIONS (2)
  - PNEUMONIA [None]
  - PNEUMONIA FUNGAL [None]
